FAERS Safety Report 5878992-3 (Version None)
Quarter: 2008Q3

REPORT INFORMATION
  Report Type: 
  Country: None (occurrence: None)
  Receive Date: 20080912
  Receipt Date: 20080909
  Transmission Date: 20090109
  Serious: Yes (Hospitalization)
  Sender: FDA-Public Use
  Company Number: AU-BRISTOL-MYERS SQUIBB COMPANY-14328892

PATIENT
  Age: 84 Year
  Sex: Male

DRUGS (1)
  1. MONOPRIL [Suspect]
     Indication: ESSENTIAL HYPERTENSION
     Dosage: UNSPECIFIED DOSE DAILY
     Route: 048

REACTIONS (1)
  - DRUG ERUPTION [None]
